FAERS Safety Report 7888311-9 (Version None)
Quarter: 2011Q4

REPORT INFORMATION
  Report Type: 
  Country: None (occurrence: None)
  Receive Date: 20111103
  Receipt Date: 20111021
  Transmission Date: 20120403
  Serious: Yes (Hospitalization, Other)
  Sender: FDA-Public Use
  Company Number: US-BAYER-2011-048620

PATIENT
  Sex: Female
  Weight: 118.37 kg

DRUGS (7)
  1. AZITHROMYCIN [Concomitant]
     Dosage: 250 MG, UNK
     Dates: start: 20090418
  2. AMOXICILLIN [Concomitant]
     Dosage: 500 MG, UNK
     Dates: start: 20090529
  3. CLARITIN [Concomitant]
     Dosage: UNK
  4. DROSPIRENONE AND ETHINYL ESTRADIOL [Suspect]
     Indication: PRODUCT USED FOR UNKNOWN INDICATION
     Dosage: UNK
     Dates: start: 20081001, end: 20090601
  5. CHLORHEXIDINE GLUCONATE [Concomitant]
     Dosage: 0.12 UNK, UNK
     Dates: start: 20090529
  6. CENGILER [Concomitant]
     Indication: MULTIPLE ALLERGIES
     Dosage: UNK
     Dates: start: 20080701, end: 20090701
  7. HYDROCHLOROTHIAZIDE [Concomitant]
     Dosage: 25 MG, UNK
     Dates: start: 20090714

REACTIONS (3)
  - INJURY [None]
  - PAIN [None]
  - PULMONARY EMBOLISM [None]
